FAERS Safety Report 9893900 (Version 1)
Quarter: 2014Q1

REPORT INFORMATION
  Report Type: Report from Study
  Country: CA (occurrence: CA)
  Receive Date: 20140213
  Receipt Date: 20140213
  Transmission Date: 20141002
  Serious: Yes (Other)
  Sender: FDA-Public Use
  Company Number: CA-JNJFOC-20140204420

PATIENT
  Age: 34 Year
  Sex: Male
  Weight: 89 kg

DRUGS (2)
  1. REMICADE [Suspect]
     Indication: CROHN^S DISEASE
     Route: 042
     Dates: start: 20110113
  2. IMURAN [Concomitant]
     Route: 065

REACTIONS (2)
  - Calculus bladder [Unknown]
  - Nephrolithiasis [Unknown]
